FAERS Safety Report 6905845-1 (Version None)
Quarter: 2010Q3

REPORT INFORMATION
  Report Type: 
  Country: None (occurrence: None)
  Receive Date: 20100802
  Receipt Date: 20100802
  Transmission Date: 20110219
  Serious: Yes (Other)
  Sender: FDA-Public Use
  Company Number: None

PATIENT
  Age: 75 Year
  Sex: Female
  Weight: 50.8029 kg

DRUGS (5)
  1. SYMBICORT [Suspect]
     Indication: CHRONIC OBSTRUCTIVE PULMONARY DISEASE
     Dosage: 1 PUFF AM AND 1 PUFF PM DAILY
     Dates: start: 20091101
  2. SYMBICORT [Suspect]
     Indication: EMPHYSEMA
     Dosage: 1 PUFF AM AND 1 PUFF PM DAILY
     Dates: start: 20091101
  3. RAMIPRIL [Concomitant]
  4. CALCIUM [Concomitant]
  5. ALENDRONATE SODIUM [Concomitant]

REACTIONS (2)
  - AGEUSIA [None]
  - ANOSMIA [None]
